FAERS Safety Report 18288651 (Version 1)
Quarter: 2020Q3

REPORT INFORMATION
  Report Type: Other
  Country: CA (occurrence: CA)
  Receive Date: 20200921
  Receipt Date: 20200921
  Transmission Date: 20201103
  Serious: Yes (Other)
  Sender: FDA-Public Use
  Company Number: CA-APOTEX-2020AP017756

PATIENT
  Sex: Female

DRUGS (3)
  1. AZATHIOPRINE. [Concomitant]
     Active Substance: AZATHIOPRINE
     Indication: PRODUCT USED FOR UNKNOWN INDICATION
     Dosage: UNK
     Route: 065
  2. HYDROCHLOROTHIAZIDE. [Suspect]
     Active Substance: HYDROCHLOROTHIAZIDE
     Indication: PRODUCT USED FOR UNKNOWN INDICATION
     Dosage: UNK
     Route: 065
  3. ACETAMINOPHEN. [Suspect]
     Active Substance: ACETAMINOPHEN
     Indication: PRODUCT USED FOR UNKNOWN INDICATION
     Dosage: UNK
     Route: 065

REACTIONS (20)
  - Cardiac failure [Unknown]
  - Coombs negative haemolytic anaemia [Unknown]
  - Cough [Unknown]
  - Fatigue [Unknown]
  - Raynaud^s phenomenon [Unknown]
  - Antisynthetase syndrome [Unknown]
  - Connective tissue disorder [Unknown]
  - Proteinuria [Unknown]
  - Weight decreased [Unknown]
  - Erythema [Unknown]
  - Interstitial lung disease [Unknown]
  - Muscular weakness [Unknown]
  - Pleural effusion [Unknown]
  - Atypical haemolytic uraemic syndrome [Unknown]
  - Myositis [Unknown]
  - Pulmonary fibrosis [Unknown]
  - Myocarditis [Unknown]
  - Pulmonary alveolar haemorrhage [Unknown]
  - Pericardial effusion [Unknown]
  - Thrombotic microangiopathy [Unknown]
